FAERS Safety Report 7585451-9 (Version None)
Quarter: 2011Q3

REPORT INFORMATION
  Report Type: 
  Country: None (occurrence: None)
  Receive Date: 20110701
  Receipt Date: 20110607
  Transmission Date: 20111222
  Serious: Yes (Hospitalization, Other)
  Sender: FDA-Public Use
  Company Number: US-BAYER-201024981NA

PATIENT
  Age: 34 Year
  Sex: Female
  Weight: 90.7 kg

DRUGS (5)
  1. OXYBUTYNIN [Concomitant]
     Dosage: 5 MG, UNK
     Route: 048
     Dates: start: 20080502
  2. YASMIN [Suspect]
     Indication: PRODUCT USED FOR UNKNOWN INDICATION
     Dosage: UNK
     Route: 048
     Dates: start: 20040101, end: 20090801
  3. LEVOTHROID [Concomitant]
     Dosage: 137 ?G, UNK
     Route: 048
     Dates: start: 20050204
  4. TEMAZEPAM [Concomitant]
     Dosage: 15 MG, UNK
     Route: 048
     Dates: start: 20050912
  5. BENTYL [Concomitant]
     Dosage: 10 MG, UNK
     Route: 048

REACTIONS (4)
  - CHOLELITHIASIS [None]
  - INTERNAL INJURY [None]
  - CHOLECYSTITIS ACUTE [None]
  - CHOLECYSTITIS CHRONIC [None]
